FAERS Safety Report 9449294 (Version 4)
Quarter: 2013Q4

REPORT INFORMATION
  Report Type: Spontaneous
  Country: FR (occurrence: FR)
  Receive Date: 20130808
  Receipt Date: 20131105
  Transmission Date: 20140711
  Serious: Yes (Death, Other)
  Sender: FDA-Public Use
  Company Number: FR-PFIZER INC-2013227380

PATIENT
  Age: 65 Year
  Sex: Female

DRUGS (4)
  1. CRIZOTINIB [Suspect]
     Indication: NON-SMALL CELL LUNG CANCER
     Dosage: 250 MG, 2X/DAY
     Route: 048
     Dates: start: 20121213
  2. CRIZOTINIB [Suspect]
     Dosage: UNK
     Dates: end: 20130115
  3. CRIZOTINIB [Suspect]
     Dosage: 200 MG, DAILY
  4. SOLUPRED [Concomitant]
     Dosage: 20 MG, DAILY

REACTIONS (6)
  - Disease progression [Fatal]
  - Non-small cell lung cancer [Fatal]
  - Hepatocellular injury [Recovering/Resolving]
  - Liver disorder [Recovering/Resolving]
  - Nausea [Unknown]
  - Asthenia [Unknown]
